FAERS Safety Report 10149510 (Version 3)
Quarter: 2016Q3

REPORT INFORMATION
  Report Type: Report from Study
  Country: US (occurrence: US)
  Receive Date: 20140502
  Receipt Date: 20160707
  Transmission Date: 20161108
  Serious: Yes (Hospitalization, Other)
  Sender: FDA-Public Use
  Company Number: US-SA-2014SA055775

PATIENT
  Age: 30 Year
  Sex: Female
  Weight: 122 kg

DRUGS (1)
  1. FABRAZYME [Suspect]
     Active Substance: AGALSIDASE BETA
     Indication: FABRY^S DISEASE
     Route: 042
     Dates: start: 20071031

REACTIONS (9)
  - Loss of consciousness [Recovered/Resolved]
  - Hypoaesthesia [Unknown]
  - Fall [Unknown]
  - Thrombosis [Unknown]
  - Lethargy [Unknown]
  - Hysterectomy [Unknown]
  - Heart rate decreased [Not Recovered/Not Resolved]
  - Sinus arrhythmia [Unknown]
  - Pulmonary thrombosis [Unknown]

NARRATIVE: CASE EVENT DATE: 20140419
